FAERS Safety Report 6917668-8 (Version None)
Quarter: 2010Q3

REPORT INFORMATION
  Report Type: 
  Country: None (occurrence: None)
  Receive Date: 20100810
  Receipt Date: 20090330
  Transmission Date: 20110219
  Serious: No
  Sender: FDA-Public Use
  Company Number: US-PFIZER INC-2008157200

PATIENT
  Sex: Female

DRUGS (1)
  1. LIPITOR [Suspect]
     Dosage: UNIT DOSE: UNKNOWN;

REACTIONS (3)
  - FEELING JITTERY [None]
  - HYPERKINESIA [None]
  - TREMOR [None]
